FAERS Safety Report 23418072 (Version 1)
Quarter: 2024Q1

REPORT INFORMATION
  Report Type: Spontaneous
  Country: CA (occurrence: CA)
  Receive Date: 20240118
  Receipt Date: 20240118
  Transmission Date: 20240410
  Serious: Yes (Hospitalization, Other)
  Sender: FDA-Public Use
  Company Number: CA-SANDOZ-SDZ2024CA005465

PATIENT
  Age: 74 Year
  Sex: Male
  Weight: 140 kg

DRUGS (2)
  1. CEFTRIAXONE SODIUM [Suspect]
     Active Substance: CEFTRIAXONE SODIUM
     Indication: Post procedural infection
     Dosage: UNK
     Route: 030
  2. PIPERACILLIN AND TAZOBACTAM [Concomitant]
     Active Substance: PIPERACILLIN SODIUM\TAZOBACTAM SODIUM
     Indication: Product used for unknown indication
     Dosage: UNK
     Route: 065

REACTIONS (6)
  - Acute kidney injury [Recovered/Resolved]
  - Blister [Recovered/Resolved]
  - Drug reaction with eosinophilia and systemic symptoms [Recovered/Resolved]
  - Eosinophilia [Recovered/Resolved]
  - Rash maculo-papular [Recovered/Resolved]
  - Respiratory failure [Recovered/Resolved]
